FAERS Safety Report 4429599-6 (Version None)
Quarter: 2004Q3

REPORT INFORMATION
  Report Type: 
  Country: None (occurrence: None)
  Receive Date: 20040816
  Receipt Date: 20040805
  Transmission Date: 20050211
  Serious: Yes (Disabling)
  Sender: FDA-Public Use
  Company Number: 2004227259FI

PATIENT
  Age: 54 Year
  Sex: Female

DRUGS (4)
  1. CELEBREX [Suspect]
     Indication: OSTEOARTHRITIS
     Dosage: 200 MG, QD, ORAL
     Route: 048
     Dates: start: 20030101
  2. LITHIUM CARBONATE [Concomitant]
  3. PERATSIN (PERPHENAZINE) [Concomitant]
  4. ORSANIL (THIORIDAZINE HYDROCHLORIDE) [Concomitant]

REACTIONS (5)
  - ABNORMAL BEHAVIOUR [None]
  - BALANCE DISORDER [None]
  - DYSARTHRIA [None]
  - MUSCULOSKELETAL STIFFNESS [None]
  - THERAPEUTIC AGENT TOXICITY [None]
